FAERS Safety Report 4951700-6 (Version None)
Quarter: 2006Q1

REPORT INFORMATION
  Report Type: 
  Country: None (occurrence: None)
  Receive Date: 20060322
  Receipt Date: 20060322
  Transmission Date: 20060701
  Serious: No
  Sender: FDA-Public Use
  Company Number: None

PATIENT
  Age: 80 Year
  Sex: Female

DRUGS (2)
  1. ENDOCORT EC [Suspect]
     Dosage: TID PO
     Route: 048
     Dates: end: 20051101
  2. POTASSIUM CHLORIDE [Suspect]
     Dosage: 10 MG

REACTIONS (6)
  - BLOOD POTASSIUM INCREASED [None]
  - DEHYDRATION [None]
  - DIARRHOEA [None]
  - MALAISE [None]
  - OFF LABEL USE [None]
  - WEIGHT DECREASED [None]
